FAERS Safety Report 18599034 (Version 2)
Quarter: 2020Q4

REPORT INFORMATION
  Report Type: Spontaneous
  Country: JP (occurrence: JP)
  Receive Date: 20201210
  Receipt Date: 20201222
  Transmission Date: 20210114
  Serious: Yes (Hospitalization)
  Sender: FDA-Public Use
  Company Number: JP-B.I. PHARMACEUTICALS,INC./RIDGEFIELD-2020-BI-060320

PATIENT
  Age: 71 Year
  Sex: Male

DRUGS (6)
  1. FLAGYL [Suspect]
     Active Substance: METRONIDAZOLE\METRONIDAZOLE HYDROCHLORIDE
     Indication: HELICOBACTER TEST POSITIVE
     Route: 065
     Dates: start: 20201020
  2. TAKECAB [Suspect]
     Active Substance: VONOPRAZAN FUMARATE
     Indication: HELICOBACTER TEST POSITIVE
     Route: 065
     Dates: start: 20201020
  3. OFEV [Suspect]
     Active Substance: NINTEDANIB
     Route: 048
     Dates: start: 20201116, end: 20201117
  4. OFEV [Suspect]
     Active Substance: NINTEDANIB
     Route: 048
     Dates: start: 20201104, end: 20201115
  5. OFEV [Suspect]
     Active Substance: NINTEDANIB
     Indication: HYPERSENSITIVITY PNEUMONITIS
     Route: 048
     Dates: start: 20201007, end: 20201104
  6. AMOXICILLIN HYDRATE [Suspect]
     Active Substance: AMOXICILLIN
     Indication: HELICOBACTER TEST POSITIVE
     Route: 065
     Dates: start: 20201020

REACTIONS (4)
  - Hepatic enzyme increased [Recovered/Resolved]
  - Eosinophilic pneumonia [Unknown]
  - Eosinophil count increased [Recovered/Resolved]
  - Nasopharyngitis [Unknown]

NARRATIVE: CASE EVENT DATE: 20201018
